FAERS Safety Report 5761800-9 (Version None)
Quarter: 2008Q2

REPORT INFORMATION
  Report Type: 
  Country: None (occurrence: None)
  Receive Date: 20080606
  Receipt Date: 20080527
  Transmission Date: 20081010
  Serious: Yes (Other)
  Sender: FDA-Public Use
  Company Number: US-PFIZER INC-2008045192

PATIENT
  Sex: Male
  Weight: 86.2 kg

DRUGS (8)
  1. LYRICA [Suspect]
     Indication: NEUROPATHY PERIPHERAL
     Route: 048
     Dates: start: 20070501, end: 20070601
  2. ARICEPT [Concomitant]
  3. ACTONEL [Concomitant]
  4. CASODEX [Concomitant]
  5. LIPITOR [Concomitant]
  6. LISINOPRIL [Concomitant]
  7. NAMENDA [Concomitant]
  8. ZETIA [Concomitant]

REACTIONS (5)
  - ACTIVITIES OF DAILY LIVING IMPAIRED [None]
  - DIZZINESS [None]
  - DYSSTASIA [None]
  - FALL [None]
  - WRIST FRACTURE [None]
